FAERS Safety Report 12206548 (Version 1)
Quarter: 2016Q1

REPORT INFORMATION
  Report Type: Spontaneous
  Country: US (occurrence: None)
  Receive Date: 20160323
  Receipt Date: 20160323
  Transmission Date: 20160526
  Serious: Yes (Other)
  Sender: FDA-Public Use
  Company Number: None

PATIENT
  Age: 63 Year
  Sex: Female
  Weight: 78.02 kg

DRUGS (6)
  1. ELIDEL [Concomitant]
     Active Substance: PIMECROLIMUS
  2. LISONPRIL [Concomitant]
  3. OTEZLA [Suspect]
     Active Substance: APREMILAST
     Indication: PSORIASIS
     Route: 048
     Dates: start: 20160110, end: 20160320
  4. SERTRALINE [Concomitant]
     Active Substance: SERTRALINE HYDROCHLORIDE
  5. DOVONEX [Concomitant]
     Active Substance: CALCIPOTRIENE
  6. TRIAMCINILONE [Concomitant]
     Active Substance: TRIAMCINOLONE

REACTIONS (2)
  - Dyspnoea [None]
  - Lower respiratory tract infection [None]

NARRATIVE: CASE EVENT DATE: 20160310
